FAERS Safety Report 7538254-5 (Version None)
Quarter: 2011Q2

REPORT INFORMATION
  Report Type: 
  Country: None (occurrence: None)
  Receive Date: 20110609
  Receipt Date: 20041001
  Transmission Date: 20111010
  Serious: Yes (Hospitalization, Other)
  Sender: FDA-Public Use
  Company Number: PHHO2003CA09457

PATIENT
  Sex: Male

DRUGS (1)
  1. CLOZAPINE [Suspect]
     Indication: SCHIZOPHRENIA
     Dates: start: 19990325

REACTIONS (4)
  - BLADDER DISORDER [None]
  - RENAL FAILURE [None]
  - UROSEPSIS [None]
  - URINARY TRACT INFECTION [None]
